FAERS Safety Report 6366670-6 (Version None)
Quarter: 2009Q3

REPORT INFORMATION
  Report Type: 
  Country: None (occurrence: None)
  Receive Date: 20090921
  Receipt Date: 20090915
  Transmission Date: 20100115
  Serious: Yes (Life-Threatening, Hospitalization)
  Sender: FDA-Public Use
  Company Number: JP-ASTRAZENECA-2009SE13449

PATIENT
  Age: 78 Year
  Sex: Male

DRUGS (9)
  1. XYLOCAINE [Suspect]
     Indication: LOCAL ANAESTHESIA
     Route: 058
  2. PEMIROC [Suspect]
     Indication: ANTICOAGULANT THERAPY
     Dosage: DOSE UNKNOWN
     Route: 050
  3. OMEPRAL TABLETS [Concomitant]
     Route: 048
  4. SODIUM CHLORIDE [Concomitant]
     Route: 065
  5. BANAN [Concomitant]
     Route: 048
     Dates: end: 20090904
  6. GASMOTIN [Concomitant]
     Route: 048
     Dates: end: 20090904
  7. RENIVACE [Concomitant]
     Route: 048
     Dates: end: 20090904
  8. NORVASC [Concomitant]
     Route: 048
     Dates: end: 20090904
  9. MAGMITT [Concomitant]
     Dosage: DOSE UNKNOWN
     Route: 048

REACTIONS (4)
  - HYPOTENSION [None]
  - OXYGEN SATURATION DECREASED [None]
  - TACHYCARDIA [None]
  - TACHYPNOEA [None]
